FAERS Safety Report 7822082-7 (Version None)
Quarter: 2011Q4

REPORT INFORMATION
  Report Type: 
  Country: None (occurrence: None)
  Receive Date: 20111018
  Receipt Date: 20101011
  Transmission Date: 20120403
  Serious: No
  Sender: FDA-Public Use
  Company Number: US-ASTRAZENECA-2010SE47891

PATIENT
  Age: 75 Year
  Sex: Female
  Weight: 74.8 kg

DRUGS (1)
  1. SYMBICORT [Suspect]
     Indication: CHRONIC OBSTRUCTIVE PULMONARY DISEASE
     Dosage: 160/4.5 MG TWO TIMES A DAY
     Route: 055
     Dates: start: 20090101

REACTIONS (2)
  - LACRIMATION INCREASED [None]
  - MUSCLE SPASMS [None]
